FAERS Safety Report 7731938-5 (Version None)
Quarter: 2011Q3

REPORT INFORMATION
  Report Type: 
  Country: None (occurrence: None)
  Receive Date: 20110906
  Receipt Date: 20110715
  Transmission Date: 20111222
  Serious: No
  Sender: FDA-Public Use
  Company Number: US-AMGEN-USASP2011036123

PATIENT
  Age: 78 Year
  Sex: Female

DRUGS (10)
  1. VITAMIN D [Concomitant]
     Dosage: UNK
  2. ONE A DAY                          /02262701/ [Concomitant]
  3. VITAMIN D [Concomitant]
  4. GLUCOSAMINE + CHONDROITIN          /01430901/ [Concomitant]
  5. PRAVASTATIN [Concomitant]
  6. SYNTHROID [Concomitant]
  7. CALCIUM CARBONATE [Concomitant]
  8. LIBRAX                             /00847101/ [Concomitant]
  9. CYMBALTA [Concomitant]
     Indication: FIBROMYALGIA
  10. PROLIA [Suspect]
     Indication: OSTEOPOROSIS POSTMENOPAUSAL
     Dosage: 60 MG, UNK
     Dates: start: 20101201

REACTIONS (2)
  - ECZEMA [None]
  - PRURITUS [None]
